FAERS Safety Report 11058534 (Version 1)
Quarter: 2015Q2

REPORT INFORMATION
  Report Type: Spontaneous
  Country: US (occurrence: US)
  Receive Date: 20150423
  Receipt Date: 20150423
  Transmission Date: 20150821
  Serious: Yes (Death)
  Sender: FDA-Public Use
  Company Number: US-JNJFOC-20150412905

PATIENT

DRUGS (11)
  1. ACETAMINOPHEN. [Suspect]
     Active Substance: ACETAMINOPHEN
     Route: 065
  2. ORAL HYPOGLYCEMICS [Suspect]
     Active Substance: UNSPECIFIED INGREDIENT
     Indication: SUICIDE ATTEMPT
     Route: 065
  3. ACETAMINOPHEN. [Suspect]
     Active Substance: ACETAMINOPHEN
     Indication: SUICIDE ATTEMPT
     Route: 065
  4. ACETYLSALICYLIC ACID [Suspect]
     Active Substance: ASPIRIN
     Indication: SUICIDE ATTEMPT
     Route: 065
  5. TRICYCLIC ANTIDEPRESSANTS [Suspect]
     Active Substance: UNSPECIFIED INGREDIENT
     Indication: SUICIDE ATTEMPT
     Route: 065
  6. BARBITURATES [Suspect]
     Active Substance: UNSPECIFIED INGREDIENT
     Indication: SUICIDE ATTEMPT
     Route: 065
  7. CARDIOVASCULAR DRUGS [Suspect]
     Active Substance: UNSPECIFIED INGREDIENT
     Indication: SUICIDE ATTEMPT
     Route: 065
  8. ASTHMA MEDICATION (NOS) [Suspect]
     Active Substance: UNSPECIFIED INGREDIENT
     Indication: SUICIDE ATTEMPT
     Route: 065
  9. OPIOIDS [Suspect]
     Active Substance: UNSPECIFIED INGREDIENT
     Indication: SUICIDE ATTEMPT
     Route: 065
  10. MUSCLE RELAXANTS [Suspect]
     Active Substance: UNSPECIFIED INGREDIENT
     Indication: SUICIDE ATTEMPT
     Route: 065
  11. ALL OTHER THERAPEUTIC AGENTS [Suspect]
     Active Substance: UNSPECIFIED INGREDIENT
     Indication: SUICIDE ATTEMPT
     Route: 065

REACTIONS (1)
  - Toxicity to various agents [Fatal]
